FAERS Safety Report 7809882-4 (Version None)
Quarter: 2011Q4

REPORT INFORMATION
  Report Type: 
  Country: None (occurrence: None)
  Receive Date: 20111012
  Receipt Date: 20111005
  Transmission Date: 20120403
  Serious: Yes (Hospitalization)
  Sender: FDA-Public Use
  Company Number: HU-PFIZER INC-2011015344

PATIENT
  Age: 56 Year
  Sex: Male
  Weight: 60 kg

DRUGS (10)
  1. SUTENT [Suspect]
     Indication: METASTATIC RENAL CELL CARCINOMA
     Dosage: 50 MG, 1X/DAY, THROUGH 4 WEEKS AND AFTER 2 WEEKS PAUSE
     Route: 048
     Dates: start: 20100305
  2. MEGESTROL [Concomitant]
     Dosage: UNK
  3. NOACID [Concomitant]
     Dosage: UNK
  4. CHINOTAL [Concomitant]
     Dosage: UNK
  5. QUAMATEL [Concomitant]
     Dosage: UNK
  6. BUPRENORPHINE [Concomitant]
     Dosage: UNK
     Route: 062
  7. DICLOFENAC SODIUM [Concomitant]
     Dosage: UNK
  8. PENTOSANPOLYSULFAT SP 54 [Concomitant]
     Dosage: UNK
  9. ALPRAZOLAM [Concomitant]
     Dosage: UNK
  10. ACCUZIDE [Concomitant]
     Dosage: UNK

REACTIONS (3)
  - HYPERTENSIVE CRISIS [None]
  - ASTHENIA [None]
  - GENERAL PHYSICAL HEALTH DETERIORATION [None]
